FAERS Safety Report 22278389 (Version 1)
Quarter: 2023Q2

REPORT INFORMATION
  Report Type: Spontaneous
  Country: US (occurrence: US)
  Receive Date: 20230503
  Receipt Date: 20230503
  Transmission Date: 20230722
  Serious: No
  Sender: FDA-Public Use
  Company Number: US-GILEAD-2023-0615708

PATIENT
  Sex: Male

DRUGS (2)
  1. VEKLURY [Suspect]
     Active Substance: REMDESIVIR
     Indication: SARS-CoV-2 test positive
     Dosage: UNK
     Route: 065
  2. VEKLURY [Suspect]
     Active Substance: REMDESIVIR
     Dosage: UNK
     Route: 065

REACTIONS (1)
  - SARS-CoV-2 test positive [Recovered/Resolved]
